FAERS Safety Report 7521669-9 (Version None)
Quarter: 2011Q2

REPORT INFORMATION
  Report Type: 
  Country: None (occurrence: None)
  Receive Date: 20110603
  Receipt Date: 20110527
  Transmission Date: 20111010
  Serious: Yes (Hospitalization)
  Sender: FDA-Public Use
  Company Number: US-ROXANE LABORATORIES, INC.-2011-RO-00744RO

PATIENT
  Age: 53 Year
  Sex: Female
  Weight: 73 kg

DRUGS (4)
  1. EFFEXOR [Concomitant]
     Indication: DEPRESSION
     Dosage: 125 MG
     Route: 048
     Dates: start: 20080801
  2. EFFEXOR [Concomitant]
     Dosage: 150 MG
     Route: 048
  3. LITHIUM CARBONATE [Suspect]
     Indication: BIPOLAR I DISORDER
     Dosage: 600 MG
     Route: 048
     Dates: start: 20110211
  4. ATIVAN [Concomitant]
     Indication: INSOMNIA
     Dates: start: 20080801

REACTIONS (2)
  - INSOMNIA [None]
  - HOMICIDAL IDEATION [None]
